FAERS Safety Report 10721933 (Version 2)
Quarter: 2015Q1

REPORT INFORMATION
  Report Type: Report from Study
  Country: CA (occurrence: CA)
  Receive Date: 20150119
  Receipt Date: 20150220
  Transmission Date: 20150721
  Serious: Yes (Other)
  Sender: FDA-Public Use
  Company Number: CA-BAYER-2014-104058

PATIENT
  Age: 58 Year
  Sex: Male

DRUGS (6)
  1. OXYCONTIN [Concomitant]
     Active Substance: OXYCODONE HYDROCHLORIDE
     Dosage: DAILY DOSE 325 MG
  2. DILTIAZEM [Concomitant]
     Active Substance: DILTIAZEM
     Dosage: 180 MG, QD
  3. STIVARGA [Suspect]
     Active Substance: REGORAFENIB
     Indication: COLORECTAL CANCER METASTATIC
     Dosage: 160 MG, QD
     Route: 048
     Dates: start: 20140610, end: 201406
  4. STIVARGA [Suspect]
     Active Substance: REGORAFENIB
     Indication: COLORECTAL CANCER METASTATIC
     Dosage: 120MG
     Route: 048
     Dates: start: 2014, end: 2014
  5. STIVARGA [Suspect]
     Active Substance: REGORAFENIB
     Indication: COLORECTAL CANCER METASTATIC
     Dosage: 80MG
     Route: 048
     Dates: start: 2014, end: 201412
  6. TELMISARTAN. [Concomitant]
     Active Substance: TELMISARTAN
     Dosage: 80 MG, QD

REACTIONS (13)
  - Blood pressure systolic increased [None]
  - Pain in extremity [Recovering/Resolving]
  - Skin disorder [Recovering/Resolving]
  - Drug ineffective [None]
  - Metastases to lung [Not Recovered/Not Resolved]
  - Localised infection [None]
  - Metastases to liver [Not Recovered/Not Resolved]
  - Rash [None]
  - Rash macular [None]
  - Dry skin [Not Recovered/Not Resolved]
  - Blister [Not Recovered/Not Resolved]
  - Colorectal cancer metastatic [None]
  - Pain in extremity [None]

NARRATIVE: CASE EVENT DATE: 2014
